FAERS Safety Report 18534987 (Version 2)
Quarter: 2020Q4

REPORT INFORMATION
  Report Type: Report from Study
  Country: FR (occurrence: FR)
  Receive Date: 20201123
  Receipt Date: 20201214
  Transmission Date: 20210114
  Serious: Yes (Hospitalization, Other)
  Sender: FDA-Public Use
  Company Number: NVSC2020FR305949

PATIENT
  Age: 57 Year
  Sex: Male
  Weight: 87 kg

DRUGS (33)
  1. ADOPORT [Suspect]
     Active Substance: TACROLIMUS
     Dosage: 8.5 MG
     Route: 048
     Dates: start: 20200516, end: 20200526
  2. VALGANCICLOVIR. [Concomitant]
     Active Substance: VALGANCICLOVIR
     Indication: PRODUCT USED FOR UNKNOWN INDICATION
     Dosage: 450 MG, QW
     Route: 065
     Dates: start: 20200310, end: 20200320
  3. VALGANCICLOVIR. [Concomitant]
     Active Substance: VALGANCICLOVIR
     Dosage: 450 MG, QD
     Route: 065
     Dates: end: 20200422
  4. ADOPORT [Suspect]
     Active Substance: TACROLIMUS
     Dosage: 8 MG
     Route: 048
     Dates: start: 20200526
  5. LANSOPRAZOLE. [Concomitant]
     Active Substance: LANSOPRAZOLE
     Indication: PRODUCT USED FOR UNKNOWN INDICATION
     Dosage: 15 MG, QD
     Route: 065
     Dates: start: 20200308, end: 20200313
  6. VALGANCICLOVIR. [Concomitant]
     Active Substance: VALGANCICLOVIR
     Dosage: 450 MG (EVERY OTHER DAY)
     Route: 065
     Dates: end: 20020401
  7. VALGANCICLOVIR. [Concomitant]
     Active Substance: VALGANCICLOVIR
     Dosage: 450 MG (EVERY OTHER DAY)
     Route: 065
     Dates: end: 20200506
  8. DARBEPOETINE ALFA [Concomitant]
     Active Substance: DARBEPOETIN ALFA
     Indication: PRODUCT USED FOR UNKNOWN INDICATION
     Dosage: 40 UG (EVERY 15 DAYS)
     Route: 065
     Dates: start: 20200313, end: 20200415
  9. ADOPORT [Suspect]
     Active Substance: TACROLIMUS
     Dosage: 6.5 MG
     Route: 048
     Dates: start: 20200313, end: 20200314
  10. ADOPORT [Suspect]
     Active Substance: TACROLIMUS
     Dosage: 9 MG
     Route: 048
     Dates: start: 20200506, end: 20200516
  11. DARBEPOETINE ALFA [Concomitant]
     Active Substance: DARBEPOETIN ALFA
     Dosage: 40 UG  (EVERY 15 DAYS)
     Route: 065
     Dates: end: 20200504
  12. MPA [Concomitant]
     Dosage: 720 MG, BID
     Route: 065
     Dates: start: 20200308, end: 20200401
  13. VALGANCICLOVIR. [Concomitant]
     Active Substance: VALGANCICLOVIR
     Dosage: 450 MG, BID
     Route: 065
     Dates: end: 20200709
  14. VALGANCICLOVIR. [Concomitant]
     Active Substance: VALGANCICLOVIR
     Dosage: 450 MG, QD
     Route: 065
     Dates: end: 20200805
  15. ADOPORT [Suspect]
     Active Substance: TACROLIMUS
     Dosage: 7 MG
     Route: 048
     Dates: start: 20200314, end: 20200321
  16. MPA [Concomitant]
     Dosage: 360 MG, QD
     Route: 065
     Dates: end: 20200610
  17. VALGANCICLOVIR. [Concomitant]
     Active Substance: VALGANCICLOVIR
     Dosage: 450 MG, QD
     Route: 065
     Dates: end: 20200522
  18. VALGANCICLOVIR. [Concomitant]
     Active Substance: VALGANCICLOVIR
     Dosage: 450 MG (EVERY OTHER DAY)
     Route: 065
  19. DARBEPOETINE ALFA [Concomitant]
     Active Substance: DARBEPOETIN ALFA
     Dosage: 40 UG, QMO
     Route: 065
  20. CORTANCYL [Concomitant]
     Active Substance: PREDNISONE
     Indication: PRODUCT USED FOR UNKNOWN INDICATION
     Dosage: 10 MG, QD
     Route: 065
     Dates: start: 20200610, end: 20200624
  21. ADOPORT [Suspect]
     Active Substance: TACROLIMUS
     Dosage: 9.5 MG
     Route: 048
     Dates: start: 20200402, end: 20200506
  22. ADOPORT [Suspect]
     Active Substance: TACROLIMUS
     Dosage: 4.5 MG, QD
     Route: 065
  23. MPA [Concomitant]
     Dosage: 360 MG, BID
     Route: 065
  24. ADOPORT [Suspect]
     Active Substance: TACROLIMUS
     Indication: RENAL TRANSPLANT
     Dosage: 9 MG
     Route: 048
     Dates: start: 20200308, end: 20200310
  25. ADOPORT [Suspect]
     Active Substance: TACROLIMUS
     Dosage: 4.5 MG
     Route: 048
     Dates: start: 20200310, end: 20200311
  26. ADOPORT [Suspect]
     Active Substance: TACROLIMUS
     Dosage: 6 MG
     Route: 048
     Dates: start: 20200311, end: 20200313
  27. ADOPORT [Suspect]
     Active Substance: TACROLIMUS
     Dosage: 9 MG
     Route: 048
     Dates: start: 20200326, end: 20200402
  28. VALGANCICLOVIR. [Concomitant]
     Active Substance: VALGANCICLOVIR
     Dosage: 450 MG, BID
     Route: 065
     Dates: end: 20200810
  29. ADOPORT [Suspect]
     Active Substance: TACROLIMUS
     Dosage: 8 MG
     Route: 048
     Dates: start: 20200321, end: 20200326
  30. MPA [Concomitant]
     Indication: PRODUCT USED FOR UNKNOWN INDICATION
     Dosage: 720 MG (ONCE)
     Route: 065
     Dates: start: 20200307
  31. MPA [Concomitant]
     Dosage: 360 MG, BID
     Route: 065
     Dates: end: 20200515
  32. TRIMETHOPRIM SULFAMETHOXAZOLE [Concomitant]
     Active Substance: SULFAMETHOXAZOLE\TRIMETHOPRIM
     Indication: PRODUCT USED FOR UNKNOWN INDICATION
     Dosage: 400 MG, QD
     Route: 065
     Dates: start: 20200307, end: 20200429
  33. CALCIUM FOLINATE [Concomitant]
     Active Substance: LEUCOVORIN CALCIUM
     Indication: PRODUCT USED FOR UNKNOWN INDICATION
     Dosage: 5 MG, QD
     Route: 065
     Dates: start: 20200308, end: 20200429

REACTIONS (7)
  - Hypertension [Recovering/Resolving]
  - Anaemia [Recovering/Resolving]
  - Headache [Recovered/Resolved]
  - Cytomegalovirus infection [Recovered/Resolved]
  - Renal impairment [Recovering/Resolving]
  - Pyelonephritis [Recovered/Resolved]
  - Hypophosphataemia [Recovering/Resolving]

NARRATIVE: CASE EVENT DATE: 20200308
